FAERS Safety Report 10253625 (Version 2)
Quarter: 2014Q2

REPORT INFORMATION
  Report Type: Report from Study
  Country: US (occurrence: US)
  Receive Date: 20140623
  Receipt Date: 20140627
  Transmission Date: 20141212
  Serious: Yes (Death, Hospitalization)
  Sender: FDA-Public Use
  Company Number: PHHO2014US008800

PATIENT
  Age: 59 Year
  Sex: Male
  Weight: 85.3 kg

DRUGS (1)
  1. ZYKADIA [Suspect]
     Dosage: UNK UKN, UNK

REACTIONS (9)
  - Pneumonia [Fatal]
  - Chest pain [Unknown]
  - Pneumothorax spontaneous [Unknown]
  - Renal failure acute [Unknown]
  - Hypotension [Unknown]
  - Lethargy [Unknown]
  - Dyspnoea [Unknown]
  - Aspergillus infection [Unknown]
  - Anuria [Unknown]
